FAERS Safety Report 17874107 (Version 1)
Quarter: 2020Q2

REPORT INFORMATION
  Report Type: Spontaneous
  Country: US (occurrence: US)
  Receive Date: 20200609
  Receipt Date: 20200609
  Transmission Date: 20200714
  Serious: No
  Sender: FDA-Public Use
  Company Number: US-AUROBINDO-AUR-APL-2019-062370

PATIENT
  Age: 56 Year
  Sex: Female
  Weight: 58 kg

DRUGS (5)
  1. VENLAFAXINE EXTENDED RELEASE CAPSULE [Suspect]
     Active Substance: VENLAFAXINE HYDROCHLORIDE
     Indication: NEURALGIA
     Dosage: 37.5 MILLIGRAM, ONCE A DAY (CAPSULE TAKE A NIGHT)
     Route: 048
     Dates: start: 20190107
  2. METOPROLOL. [Concomitant]
     Active Substance: METOPROLOL
     Indication: BLOOD PRESSURE MEASUREMENT
     Dosage: 50 MILLIGRAM, ONCE A DAY
     Route: 048
     Dates: start: 1996
  3. TOPIRAMATE. [Concomitant]
     Active Substance: TOPIRAMATE
     Indication: SEIZURE
     Dosage: 100 MILLIGRAM, TWO TIMES A DAY
     Route: 065
     Dates: start: 1998
  4. RANEXA [Concomitant]
     Active Substance: RANOLAZINE
     Indication: SEIZURE
     Dosage: 500 MILLIGRAM, TWO TIMES A DAY, TAKING 5 OR 6 YEARS
     Route: 065
  5. CLOPIDOGREL [Concomitant]
     Active Substance: CLOPIDOGREL BISULFATE
     Indication: ANTICOAGULANT THERAPY
     Dosage: 75 MILLIGRAM, ONCE A DAY
     Route: 048
     Dates: start: 1996

REACTIONS (2)
  - Diarrhoea [Recovered/Resolved]
  - Off label use [Unknown]

NARRATIVE: CASE EVENT DATE: 201908
